FAERS Safety Report 17809704 (Version 2)
Quarter: 2020Q3

REPORT INFORMATION
  Report Type: Spontaneous
  Country: US (occurrence: US)
  Receive Date: 20200520
  Receipt Date: 20200706
  Transmission Date: 20201102
  Serious: Yes (Hospitalization, Other)
  Sender: FDA-Public Use
  Company Number: US-PFM-2020-13598

PATIENT
  Sex: Male
  Weight: 5.44 kg

DRUGS (1)
  1. HEMANGEOL [Suspect]
     Active Substance: PROPRANOLOL HYDROCHLORIDE
     Indication: INFANTILE HAEMANGIOMA
     Dosage: 2.8 ML, BID (2/DAY)
     Route: 065

REACTIONS (3)
  - Infantile spasms [Unknown]
  - Dehydration [Recovered/Resolved]
  - Vomiting [Recovered/Resolved]
